FAERS Safety Report 5022385-8 (Version None)
Quarter: 2006Q2

REPORT INFORMATION
  Report Type: 
  Country: None (occurrence: None)
  Receive Date: 20060605
  Receipt Date: 20060523
  Transmission Date: 20061013
  Serious: Yes (Life-Threatening)
  Sender: FDA-Public Use
  Company Number: MC200600326

PATIENT
  Age: 45 Year
  Sex: Male

DRUGS (3)
  1. ANGIOX           (BIVALIRUDIN) [Suspect]
     Dosage: SEE IMAGE
     Route: 050
     Dates: start: 20060522, end: 20060522
  2. NIOPAM (IOPAMIDOL) [Suspect]
     Dates: start: 20060522, end: 20060522
  3. OMNIPAQUE ^NYCOMED^ (IOHEXOL) [Suspect]
     Dates: start: 20060522, end: 20060522

REACTIONS (7)
  - ANAPHYLACTIC REACTION [None]
  - BLOOD PRESSURE DECREASED [None]
  - CARDIAC ARREST [None]
  - CONDITION AGGRAVATED [None]
  - CORONARY ARTERY OCCLUSION [None]
  - PRURITUS [None]
  - VOMITING [None]
